FAERS Safety Report 21700301 (Version 1)
Quarter: 2022Q4

REPORT INFORMATION
  Report Type: Spontaneous
  Country: GT (occurrence: GT)
  Receive Date: 20221208
  Receipt Date: 20221208
  Transmission Date: 20230113
  Serious: Yes (Death, Other)
  Sender: FDA-Public Use
  Company Number: GT-002147023-NVSC2021GT057024

PATIENT
  Sex: Female
  Weight: 67 kg

DRUGS (2)
  1. SECUKINUMAB [Suspect]
     Active Substance: SECUKINUMAB
     Indication: Psoriasis
     Dosage: 300 MG, QMO
     Route: 065
     Dates: end: 20210204
  2. SECUKINUMAB [Suspect]
     Active Substance: SECUKINUMAB
     Indication: Psoriasis

REACTIONS (3)
  - Foetal death [Fatal]
  - Amniotic fluid volume decreased [Unknown]
  - Maternal exposure during pregnancy [Unknown]
